FAERS Safety Report 13689138 (Version 3)
Quarter: 2017Q4

REPORT INFORMATION
  Report Type: Spontaneous
  Country: GR (occurrence: GR)
  Receive Date: 20170626
  Receipt Date: 20171114
  Transmission Date: 20180320
  Serious: Yes (Death, Other)
  Sender: FDA-Public Use
  Company Number: GR-ACTELION-A-CH2016-139809

PATIENT
  Age: 39 Year
  Sex: Male
  Weight: 76.5 kg

DRUGS (8)
  1. NEXIUM [Concomitant]
     Active Substance: ESOMEPRAZOLE MAGNESIUM
     Dosage: 40 MG, UNK
  2. FUROSEMIDE. [Concomitant]
     Active Substance: FUROSEMIDE
     Dosage: 0.5 MG, OD
     Route: 048
     Dates: start: 2015
  3. VELETRI [Suspect]
     Active Substance: EPOPROSTENOL
     Indication: PULMONARY ARTERIAL HYPERTENSION
     Dosage: 20 NG/KG, PER MIN
     Route: 042
     Dates: start: 20160421
  4. VOLIBRIS [Concomitant]
     Active Substance: AMBRISENTAN
     Indication: PULMONARY ARTERIAL HYPERTENSION
     Dosage: 10 MG, OD
     Route: 048
     Dates: start: 2015
  5. MABTHERA [Concomitant]
     Active Substance: RITUXIMAB
     Indication: PULMONARY ARTERIAL HYPERTENSION
     Dosage: UNK
     Dates: start: 201606
  6. SINTROM [Concomitant]
     Active Substance: ACENOCOUMAROL
  7. ADCIRCA [Concomitant]
     Active Substance: TADALAFIL
     Dosage: 20 MG, BID
     Route: 048
     Dates: start: 2015
  8. MYFORTIC [Concomitant]
     Active Substance: MYCOPHENOLATE SODIUM
     Dosage: 360 MG, BID
     Route: 048
     Dates: start: 2012

REACTIONS (19)
  - Pyrexia [Not Recovered/Not Resolved]
  - Dizziness [Unknown]
  - Hypoaesthesia [Recovered/Resolved]
  - Drug ineffective [Unknown]
  - Decreased appetite [Not Recovered/Not Resolved]
  - Computerised tomogram thorax abnormal [Unknown]
  - Erythema [Unknown]
  - Biopsy lung abnormal [Fatal]
  - Diarrhoea [Recovered/Resolved]
  - Dyspnoea [Recovered/Resolved]
  - Malaise [Unknown]
  - Insomnia [Unknown]
  - Device occlusion [Not Recovered/Not Resolved]
  - Lung neoplasm malignant [Fatal]
  - Pain in jaw [Not Recovered/Not Resolved]
  - Hypotension [Not Recovered/Not Resolved]
  - Pruritus [Unknown]
  - Generalised erythema [Not Recovered/Not Resolved]
  - Weight decreased [Not Recovered/Not Resolved]

NARRATIVE: CASE EVENT DATE: 20160421
